FAERS Safety Report 20864386 (Version 1)
Quarter: 2022Q2

REPORT INFORMATION
  Report Type: Spontaneous
  Country: AU (occurrence: AU)
  Receive Date: 20220523
  Receipt Date: 20220523
  Transmission Date: 20220720
  Serious: Yes (Other)
  Sender: FDA-Public Use
  Company Number: AU-009507513-2205AUS004276

PATIENT

DRUGS (50)
  1. TEMOZOLOMIDE [Suspect]
     Active Substance: TEMOZOLOMIDE
     Indication: Central nervous system lymphoma
     Dosage: UNK
     Route: 048
  2. TEMOZOLOMIDE [Suspect]
     Active Substance: TEMOZOLOMIDE
     Indication: Central nervous system lymphoma
  3. TEMOZOLOMIDE [Suspect]
     Active Substance: TEMOZOLOMIDE
     Indication: Marginal zone lymphoma
  4. TEMOZOLOMIDE [Suspect]
     Active Substance: TEMOZOLOMIDE
     Indication: Mantle cell lymphoma
  5. TEMOZOLOMIDE [Suspect]
     Active Substance: TEMOZOLOMIDE
     Indication: Chronic lymphocytic leukaemia
  6. CARBOPLATIN [Suspect]
     Active Substance: CARBOPLATIN
     Indication: Central nervous system lymphoma
     Dosage: UNK
  7. CARBOPLATIN [Suspect]
     Active Substance: CARBOPLATIN
     Indication: Central nervous system lymphoma
  8. CARBOPLATIN [Suspect]
     Active Substance: CARBOPLATIN
     Indication: Marginal zone lymphoma
  9. CARBOPLATIN [Suspect]
     Active Substance: CARBOPLATIN
     Indication: Mantle cell lymphoma
  10. CARBOPLATIN [Suspect]
     Active Substance: CARBOPLATIN
     Indication: Chronic lymphocytic leukaemia
  11. DEXAMETHASONE ACETATE [Suspect]
     Active Substance: DEXAMETHASONE ACETATE
     Indication: Central nervous system lymphoma
     Dosage: UNK
  12. DEXAMETHASONE ACETATE [Suspect]
     Active Substance: DEXAMETHASONE ACETATE
     Indication: Central nervous system lymphoma
  13. DOXYCYCLINE HYDROCHLORIDE [Suspect]
     Active Substance: DOXYCYCLINE HYDROCHLORIDE
     Indication: Central nervous system lymphoma
     Dosage: UNK
  14. DOXYCYCLINE HYDROCHLORIDE [Suspect]
     Active Substance: DOXYCYCLINE HYDROCHLORIDE
     Indication: Central nervous system lymphoma
  15. DOXYCYCLINE HYDROCHLORIDE [Suspect]
     Active Substance: DOXYCYCLINE HYDROCHLORIDE
     Indication: Marginal zone lymphoma
  16. DOXYCYCLINE HYDROCHLORIDE [Suspect]
     Active Substance: DOXYCYCLINE HYDROCHLORIDE
     Indication: Mantle cell lymphoma
  17. DOXYCYCLINE HYDROCHLORIDE [Suspect]
     Active Substance: DOXYCYCLINE HYDROCHLORIDE
     Indication: Chronic lymphocytic leukaemia
  18. ETOPOSIDE [Suspect]
     Active Substance: ETOPOSIDE
     Indication: Central nervous system lymphoma
     Dosage: UNK
  19. ETOPOSIDE [Suspect]
     Active Substance: ETOPOSIDE
     Indication: Central nervous system lymphoma
  20. ETOPOSIDE [Suspect]
     Active Substance: ETOPOSIDE
     Indication: Marginal zone lymphoma
  21. ETOPOSIDE [Suspect]
     Active Substance: ETOPOSIDE
     Indication: Chronic lymphocytic leukaemia
  22. ETOPOSIDE [Suspect]
     Active Substance: ETOPOSIDE
     Indication: Mantle cell lymphoma
  23. IBRUTINIB [Suspect]
     Active Substance: IBRUTINIB
     Indication: Chronic lymphocytic leukaemia
     Dosage: 420 MILLIGRAM
     Route: 048
  24. IBRUTINIB [Suspect]
     Active Substance: IBRUTINIB
     Indication: Marginal zone lymphoma
     Dosage: 560 MILLIGRAM
     Route: 048
  25. IBRUTINIB [Suspect]
     Active Substance: IBRUTINIB
     Indication: Mantle cell lymphoma
  26. IBRUTINIB [Suspect]
     Active Substance: IBRUTINIB
     Indication: Central nervous system lymphoma
  27. IFOSFAMIDE [Suspect]
     Active Substance: IFOSFAMIDE
     Indication: Central nervous system lymphoma
     Dosage: UNK
  28. IFOSFAMIDE [Suspect]
     Active Substance: IFOSFAMIDE
     Indication: Central nervous system lymphoma
  29. IFOSFAMIDE [Suspect]
     Active Substance: IFOSFAMIDE
     Indication: Marginal zone lymphoma
  30. IFOSFAMIDE [Suspect]
     Active Substance: IFOSFAMIDE
     Indication: Mantle cell lymphoma
  31. IFOSFAMIDE [Suspect]
     Active Substance: IFOSFAMIDE
     Indication: Chronic lymphocytic leukaemia
  32. METHOTREXATE SODIUM [Suspect]
     Active Substance: METHOTREXATE SODIUM
     Indication: Central nervous system lymphoma
     Dosage: UNK
  33. METHOTREXATE SODIUM [Suspect]
     Active Substance: METHOTREXATE SODIUM
     Indication: Central nervous system lymphoma
  34. METHOTREXATE SODIUM [Suspect]
     Active Substance: METHOTREXATE SODIUM
     Indication: Chronic lymphocytic leukaemia
  35. METHOTREXATE SODIUM [Suspect]
     Active Substance: METHOTREXATE SODIUM
     Indication: Mantle cell lymphoma
  36. METHOTREXATE SODIUM [Suspect]
     Active Substance: METHOTREXATE SODIUM
     Indication: Marginal zone lymphoma
  37. OBINUTUZUMAB [Suspect]
     Active Substance: OBINUTUZUMAB
     Indication: Chronic lymphocytic leukaemia
     Dosage: UNK
     Route: 042
  38. OBINUTUZUMAB [Suspect]
     Active Substance: OBINUTUZUMAB
     Indication: Mantle cell lymphoma
  39. OBINUTUZUMAB [Suspect]
     Active Substance: OBINUTUZUMAB
     Indication: Marginal zone lymphoma
  40. OBINUTUZUMAB [Suspect]
     Active Substance: OBINUTUZUMAB
     Indication: Central nervous system lymphoma
  41. OFATUMUMAB [Suspect]
     Active Substance: OFATUMUMAB
     Indication: Central nervous system lymphoma
     Dosage: UNK
  42. OFATUMUMAB [Suspect]
     Active Substance: OFATUMUMAB
     Indication: Central nervous system lymphoma
  43. OFATUMUMAB [Suspect]
     Active Substance: OFATUMUMAB
     Indication: Marginal zone lymphoma
  44. OFATUMUMAB [Suspect]
     Active Substance: OFATUMUMAB
     Indication: Mantle cell lymphoma
  45. RITUXIMAB [Suspect]
     Active Substance: RITUXIMAB
     Indication: Central nervous system lymphoma
     Dosage: UNK
  46. RITUXIMAB [Suspect]
     Active Substance: RITUXIMAB
     Indication: Chronic lymphocytic leukaemia
  47. RITUXIMAB [Suspect]
     Active Substance: RITUXIMAB
     Indication: Marginal zone lymphoma
  48. RITUXIMAB [Suspect]
     Active Substance: RITUXIMAB
     Indication: Mantle cell lymphoma
  49. VENETOCLAX [Suspect]
     Active Substance: VENETOCLAX
     Indication: Central nervous system lymphoma
     Dosage: UNK
     Route: 048
  50. VENETOCLAX [Suspect]
     Active Substance: VENETOCLAX
     Indication: Central nervous system lymphoma

REACTIONS (10)
  - Aspergillus infection [Unknown]
  - Atrial fibrillation [Unknown]
  - Febrile neutropenia [Unknown]
  - Haemorrhage [Unknown]
  - Cytopenia [Unknown]
  - Infection [Unknown]
  - Neutropenia [Unknown]
  - Thrombocytopenia [Unknown]
  - Anaemia [Unknown]
  - Disease progression [Unknown]
